FAERS Safety Report 16489591 (Version 1)
Quarter: 2019Q2

REPORT INFORMATION
  Report Type: Spontaneous
  Country: US (occurrence: US)
  Receive Date: 20190628
  Receipt Date: 20190628
  Transmission Date: 20190711
  Serious: No
  Sender: FDA-Public Use
  Company Number: US-ACCORD-069846

PATIENT
  Age: 66 Year
  Sex: Female

DRUGS (1)
  1. CLONAZEPAM ACCORD [Suspect]
     Active Substance: CLONAZEPAM
     Indication: DYSPEPSIA
     Dosage: STRENGTH: 0.5 MG, 1/4 OF A TABLET?THREE TIMES A DAY, AFTER EACH MEAL
     Route: 048
     Dates: start: 20180709

REACTIONS (4)
  - Muscle twitching [Unknown]
  - Product substitution issue [Unknown]
  - Off label use [Unknown]
  - Wrong technique in product usage process [Unknown]
